FAERS Safety Report 6929687-6 (Version None)
Quarter: 2010Q3

REPORT INFORMATION
  Report Type: 
  Country: None (occurrence: None)
  Receive Date: 20100813
  Receipt Date: 20100802
  Transmission Date: 20110219
  Serious: Yes (Hospitalization, Other)
  Sender: FDA-Public Use
  Company Number: DSJ-2010-13157

PATIENT
  Age: 73 Year
  Sex: Female

DRUGS (12)
  1. BENICAR [Suspect]
     Indication: HYPERTENSION
     Dosage: 20 MG (20 MG, 1 IN 1 D), PER ORAL
     Route: 048
     Dates: start: 20080101
  2. FLUOXETINE [Concomitant]
  3. PROPYPHENAZONE/DIHYDROERGOTAMINE/CAFFEINE [Concomitant]
  4. SPIRONOLACTONE [Concomitant]
  5. CLONIDINE [Concomitant]
  6. ACETYLSALICYLIC ACID SRT [Concomitant]
  7. EZETIMIBE/SIMVASTATIN [Concomitant]
  8. OMEPRAZOLE [Concomitant]
  9. SOYA LECITHIN (GLYCINE MAX EXTRACT) (GLYCINE MAX EXTRACT) [Concomitant]
  10. VITAMIN E (TOCOPHEROL) (TOCOPHEROL) [Concomitant]
  11. B COMPLEX (PYRIDOXINE HYDROCHLORIDE, THIAMINE HYDROCHLORIDE, RIBOFLAVI [Concomitant]
  12. CALCIUM/VITAMIN D (COLECALCIFEROL, CALCIUM CARBONATE) (COLECALCIFEROL, [Concomitant]

REACTIONS (3)
  - CATARACT OPERATION [None]
  - DRUG INEFFECTIVE [None]
  - INSOMNIA [None]
